FAERS Safety Report 14683723 (Version 1)
Quarter: 2018Q1

REPORT INFORMATION
  Report Type: Spontaneous
  Country: ES (occurrence: ES)
  Receive Date: 20180327
  Receipt Date: 20180327
  Transmission Date: 20180509
  Serious: Yes (Other)
  Sender: FDA-Public Use
  Company Number: ES-BAXTER-2018BAX009439

PATIENT
  Age: 23 Year
  Sex: Male

DRUGS (11)
  1. PREDNISONE. [Suspect]
     Active Substance: PREDNISONE
     Indication: ACUTE LYMPHOCYTIC LEUKAEMIA
     Dosage: FORM: UNKNOWN
     Route: 065
     Dates: start: 20130212
  2. IMATINIB [Suspect]
     Active Substance: IMATINIB
     Indication: ACUTE LYMPHOCYTIC LEUKAEMIA
     Dosage: FORM: UNKNOWN
     Route: 065
     Dates: start: 20130325, end: 20130725
  3. METHOTREXATE. [Suspect]
     Active Substance: METHOTREXATE
     Dosage: FORM: UNKNOWN
     Route: 065
     Dates: start: 20131023
  4. DAUNORUBICIN [Suspect]
     Active Substance: DAUNORUBICIN
     Indication: ACUTE LYMPHOCYTIC LEUKAEMIA
     Dosage: FORM: UNKNOWN
     Route: 065
     Dates: start: 20130212
  5. IMATINIB [Suspect]
     Active Substance: IMATINIB
     Dosage: FORM: UNKNOWN
     Route: 065
     Dates: start: 20131022
  6. IMATINIB [Suspect]
     Active Substance: IMATINIB
     Dosage: FORM: UNKNOWN
     Route: 065
     Dates: start: 20130212
  7. CYTARABINE. [Suspect]
     Active Substance: CYTARABINE
     Indication: ACUTE LYMPHOCYTIC LEUKAEMIA
     Dosage: FORM: UNKNOWN
     Route: 065
     Dates: start: 20130325, end: 20130725
  8. GENOXAL [Suspect]
     Active Substance: CYCLOPHOSPHAMIDE
     Indication: ACUTE LYMPHOCYTIC LEUKAEMIA
     Dosage: FORM:UNKNOWN
     Route: 065
     Dates: start: 20130823
  9. METHOTREXATE. [Suspect]
     Active Substance: METHOTREXATE
     Indication: PRODUCT USED FOR UNKNOWN INDICATION
     Dosage: FORM: UNKNOWN
     Route: 065
     Dates: start: 20130323, end: 20130725
  10. MERCAPTOPURINE. [Suspect]
     Active Substance: MERCAPTOPURINE
     Indication: ACUTE LYMPHOCYTIC LEUKAEMIA
     Dosage: FORM: UNKNOWN
     Route: 065
     Dates: start: 20131022
  11. VINCRISTINE SULFATE. [Suspect]
     Active Substance: VINCRISTINE SULFATE
     Indication: ACUTE LYMPHOCYTIC LEUKAEMIA
     Route: 065
     Dates: start: 20130212

REACTIONS (1)
  - Acute lymphocytic leukaemia recurrent [Unknown]

NARRATIVE: CASE EVENT DATE: 20140415
